FAERS Safety Report 9721944 (Version 2)
Quarter: 2014Q1

REPORT INFORMATION
  Report Type: Spontaneous
  Country: US (occurrence: US)
  Receive Date: 20131202
  Receipt Date: 20140127
  Transmission Date: 20141002
  Serious: Yes (Other)
  Sender: FDA-Public Use
  Company Number: US-JNJFOC-20131117528

PATIENT
  Age: 58 Year
  Sex: Female
  Weight: 48.54 kg

DRUGS (3)
  1. LISTERINE WHITENING RINSE CLEAN MINT [Suspect]
     Indication: PRODUCT USED FOR UNKNOWN INDICATION
     Dosage: DOSAGE: 1/2 CAP OR LESS
     Route: 048
     Dates: end: 201311
  2. MULTIVITAMINS [Concomitant]
     Indication: PRODUCT USED FOR UNKNOWN INDICATION
     Route: 065
  3. HERBAL PREPARATION [Concomitant]
     Indication: PRODUCT USED FOR UNKNOWN INDICATION
     Route: 065

REACTIONS (5)
  - Skin exfoliation [Recovered/Resolved]
  - Pain [Recovered/Resolved]
  - Oral discomfort [Recovered/Resolved]
  - Dysphagia [Recovered/Resolved]
  - Oral mucosal erythema [Recovered/Resolved]
